FAERS Safety Report 16676439 (Version 1)
Quarter: 2019Q3

REPORT INFORMATION
  Report Type: Spontaneous
  Country: JP (occurrence: JP)
  Receive Date: 20190807
  Receipt Date: 20190807
  Transmission Date: 20191004
  Serious: Yes (Death, Other)
  Sender: FDA-Public Use
  Company Number: JP-ASTELLAS-2019JP005471

PATIENT
  Age: 20 Year
  Sex: Male

DRUGS (8)
  1. BLINCYTO [Suspect]
     Active Substance: BLINATUMOMAB
     Dosage: 28 UG/DAY, UNKNOWN FREQ.
     Route: 040
     Dates: start: 20190110, end: 20190111
  2. PREDNISOLONE. [Concomitant]
     Active Substance: PREDNISOLONE
     Indication: PRODUCT USED FOR UNKNOWN INDICATION
     Dosage: UNK UNK, UNKNOWN FREQ.
     Route: 065
     Dates: start: 20190227
  3. PROGRAF [Suspect]
     Active Substance: TACROLIMUS\TACROLIMUS ANHYDROUS
     Indication: PROPHYLAXIS AGAINST GRAFT VERSUS HOST DISEASE
     Dosage: UNK UNK, UNKNOWN FREQ.
     Route: 065
     Dates: start: 20190227
  4. BLINCYTO [Suspect]
     Active Substance: BLINATUMOMAB
     Indication: ACUTE LYMPHOCYTIC LEUKAEMIA
     Dosage: 9 UG/DAY, UNKNOWN FREQ.
     Route: 041
     Dates: start: 20181129, end: 20181205
  5. BLINCYTO [Suspect]
     Active Substance: BLINATUMOMAB
     Dosage: 9 UG/DAY, UNKNOWN FREQ.
     Route: 041
     Dates: start: 20190111, end: 20190117
  6. BLINCYTO [Suspect]
     Active Substance: BLINATUMOMAB
     Dosage: UNK UNK, UNKNOWN FREQ.
     Route: 065
  7. CELLCEPT [Concomitant]
     Active Substance: MYCOPHENOLATE MOFETIL\MYCOPHENOLATE MOFETIL HYDROCHLORIDE
     Indication: PRODUCT USED FOR UNKNOWN INDICATION
     Dosage: UNK UNK, UNKNOWN FREQ.
     Route: 065
     Dates: start: 20190227
  8. BLINCYTO [Suspect]
     Active Substance: BLINATUMOMAB
     Dosage: 28 UG/DAY, UNKNOWN FREQ.
     Route: 040
     Dates: start: 20181205, end: 20181225

REACTIONS (5)
  - Death [Fatal]
  - Sepsis [Recovered/Resolved]
  - Brain natriuretic peptide increased [Recovering/Resolving]
  - Oedema [Recovered/Resolved]
  - Renal impairment [Recovered/Resolved]
